FAERS Safety Report 20577436 (Version 1)
Quarter: 2022Q1

REPORT INFORMATION
  Report Type: Spontaneous
  Country: US (occurrence: None)
  Receive Date: 20220309
  Receipt Date: 20220309
  Transmission Date: 20220423
  Serious: Yes (Other)
  Sender: FDA-Public Use
  Company Number: None

PATIENT
  Age: 50 Year
  Sex: Female
  Weight: 49.5 kg

DRUGS (4)
  1. POLYLACTIDE, L- [Suspect]
     Active Substance: POLYLACTIDE, L-
     Indication: Facial wasting
     Dosage: OTHER QUANTITY : 2 VIALS;?OTHER FREQUENCY : ONE TIME AT VISIT;?OTHER ROUTE : INJECTION UNDER FACIAL
     Route: 050
     Dates: start: 20210401, end: 20210401
  2. HYALURONIC ACID [Suspect]
     Active Substance: HYALURONIC ACID
     Indication: Skin cosmetic procedure
     Dosage: OTHER QUANTITY : 1 SYRINGE;?OTHER FREQUENCY : AT TIME OF VISIT;?OTHER ROUTE : INJECTION IN/UNDER SKI
     Route: 058
  3. BOTOX [Suspect]
     Active Substance: ONABOTULINUMTOXINA
  4. CLOLESTIPOL [Concomitant]

REACTIONS (6)
  - Nodule [None]
  - Pain [None]
  - Oropharyngeal pain [None]
  - Peripheral swelling [None]
  - Skin irritation [None]
  - Alanine aminotransferase increased [None]

NARRATIVE: CASE EVENT DATE: 20210401
